FAERS Safety Report 16575291 (Version 2)
Quarter: 2019Q3

REPORT INFORMATION
  Report Type: Report from Study
  Country: US (occurrence: US)
  Receive Date: 20190716
  Receipt Date: 20190717
  Transmission Date: 20191004
  Serious: No
  Sender: FDA-Public Use
  Company Number: PHEH2019US029012

PATIENT
  Age: 34 Year
  Sex: Female

DRUGS (1)
  1. MAYZENT [Suspect]
     Active Substance: SIPONIMOD
     Indication: RELAPSING MULTIPLE SCLEROSIS
     Dosage: UNK UNK, QD
     Route: 048
     Dates: start: 20190703

REACTIONS (2)
  - Headache [Unknown]
  - Fatigue [Unknown]

NARRATIVE: CASE EVENT DATE: 20190703
